FAERS Safety Report 6055671-3 (Version None)
Quarter: 2009Q1

REPORT INFORMATION
  Report Type: 
  Country: None (occurrence: None)
  Receive Date: 20090128
  Receipt Date: 20090122
  Transmission Date: 20090719
  Serious: Yes (Death)
  Sender: FDA-Public Use
  Company Number: SE-ELI_LILLY_AND_COMPANY-SE200901003960

PATIENT
  Sex: Female

DRUGS (2)
  1. GEMZAR [Suspect]
     Dosage: UNK, UNKNOWN
     Route: 065
  2. XELODA [Concomitant]
     Dosage: 1500 MG X 2 ON DAYS 1-14 EVERY 28TH DAY
     Route: 065
     Dates: start: 20080201

REACTIONS (1)
  - CARDIOMYOPATHY [None]
